FAERS Safety Report 7906690-0 (Version None)
Quarter: 2011Q4

REPORT INFORMATION
  Report Type: 
  Country: None (occurrence: None)
  Receive Date: 20111109
  Receipt Date: 20111109
  Transmission Date: 20120403
  Serious: Yes (Death)
  Sender: FDA-Public Use
  Company Number: None

PATIENT
  Age: 45 Year
  Sex: Female
  Weight: 63.5036 kg

DRUGS (2)
  1. CELEXA [Suspect]
     Indication: ANXIETY
     Dosage: 10MG. DAILY P.O.
     Route: 048
     Dates: start: 20110720, end: 20110724
  2. CELEXA [Suspect]
     Indication: DEPRESSION
     Dosage: 10MG. DAILY P.O.
     Route: 048
     Dates: start: 20110720, end: 20110724

REACTIONS (1)
  - MALAISE [None]
